FAERS Safety Report 6924836-8 (Version None)
Quarter: 2010Q3

REPORT INFORMATION
  Report Type: 
  Country: None (occurrence: None)
  Receive Date: 20100816
  Receipt Date: 20100804
  Transmission Date: 20110219
  Serious: Yes (Other)
  Sender: FDA-Public Use
  Company Number: FR-JNJFOC-20100111555

PATIENT
  Age: 39 Year
  Sex: Female

DRUGS (3)
  1. REMICADE [Suspect]
     Indication: COLITIS ULCERATIVE
     Dosage: 5TH INFUSION
     Route: 042
  2. REMICADE [Suspect]
     Route: 042
  3. REMICADE [Suspect]
     Dosage: 6TH INFUSION
     Route: 042

REACTIONS (3)
  - ARTHRALGIA [None]
  - INFUSION RELATED REACTION [None]
  - RHEUMATOID ARTHRITIS [None]
